FAERS Safety Report 20451013 (Version 1)
Quarter: 2022Q1

REPORT INFORMATION
  Report Type: Spontaneous
  Country: US (occurrence: None)
  Receive Date: 20220209
  Receipt Date: 20220209
  Transmission Date: 20220423
  Serious: Yes (Other)
  Sender: FDA-Public Use
  Company Number: None

PATIENT
  Age: 52 Year
  Sex: Male
  Weight: 69.75 kg

DRUGS (13)
  1. QULIPTA [Suspect]
     Active Substance: ATOGEPANT
     Indication: Migraine prophylaxis
     Dosage: OTHER QUANTITY : 1 TABLET(S);?FREQUENCY : DAILY;?
     Route: 048
     Dates: start: 20220128, end: 20220208
  2. BiPAP machine [Concomitant]
  3. DIVALPROEX SODIUM [Concomitant]
     Active Substance: DIVALPROEX SODIUM
  4. ELETRIPTAN [Concomitant]
     Active Substance: ELETRIPTAN
  5. naratripan [Concomitant]
  6. TRAZODONE [Concomitant]
     Active Substance: TRAZODONE HYDROCHLORIDE
  7. BACLOFEN [Concomitant]
     Active Substance: BACLOFEN
  8. LUNESTA [Concomitant]
     Active Substance: ESZOPICLONE
  9. BUPROPION [Concomitant]
     Active Substance: BUPROPION
  10. TADALAFIL [Concomitant]
     Active Substance: TADALAFIL
  11. VITAMINS [Concomitant]
     Active Substance: VITAMINS
  12. MELATONIN [Concomitant]
  13. ZYRTEC [Concomitant]
     Active Substance: CETIRIZINE HYDROCHLORIDE

REACTIONS (4)
  - Diarrhoea [None]
  - Vomiting [None]
  - SARS-CoV-2 test negative [None]
  - Feeding disorder [None]

NARRATIVE: CASE EVENT DATE: 20220129
